FAERS Safety Report 20114103 (Version 1)
Quarter: 2021Q4

REPORT INFORMATION
  Report Type: Spontaneous
  Country: None (occurrence: IL)
  Receive Date: 20211125
  Receipt Date: 20211125
  Transmission Date: 20220303
  Serious: Yes (Hospitalization)
  Sender: FDA-Public Use
  Company Number: IL-Oxford Pharmaceuticals, LLC-2122336

PATIENT
  Age: 72 Year
  Sex: Male

DRUGS (5)
  1. SERTRALINE HYDROCHLORIDE [Suspect]
     Active Substance: SERTRALINE HYDROCHLORIDE
     Indication: Product used for unknown indication
  2. RAMIPRIL [Concomitant]
     Active Substance: RAMIPRIL
  3. BISOPROLOL. [Concomitant]
     Active Substance: BISOPROLOL FUMARATE
  4. RIVAROXABAN [Concomitant]
     Active Substance: RIVAROXABAN
  5. SIMVASTATIN [Concomitant]
     Active Substance: SIMVASTATIN

REACTIONS (1)
  - Interstitial lung disease [Recovering/Resolving]
